FAERS Safety Report 16293981 (Version 2)
Quarter: 2019Q2

REPORT INFORMATION
  Report Type: Report from Study
  Country: US (occurrence: US)
  Receive Date: 20190509
  Receipt Date: 20190516
  Transmission Date: 20190711
  Serious: Yes (Hospitalization, Other)
  Sender: FDA-Public Use
  Company Number: US-GILEAD-2019-0406391

PATIENT
  Age: 86 Year
  Sex: Male

DRUGS (1)
  1. RANOLAZINE. [Suspect]
     Active Substance: RANOLAZINE
     Indication: ANGINA PECTORIS
     Dosage: 1000 MG, BID
     Route: 048
     Dates: start: 2014

REACTIONS (7)
  - Cardiac assistance device user [Unknown]
  - Pneumonia [Unknown]
  - Angina pectoris [Unknown]
  - Product dose omission [Not Recovered/Not Resolved]
  - Testis cancer [Not Recovered/Not Resolved]
  - Rectal haemorrhage [Unknown]
  - Product dose omission [Not Recovered/Not Resolved]

NARRATIVE: CASE EVENT DATE: 201801
